FAERS Safety Report 8062245-1 (Version None)
Quarter: 2012Q1

REPORT INFORMATION
  Report Type: 
  Country: None (occurrence: None)
  Receive Date: 20120118
  Receipt Date: 20120106
  Transmission Date: 20120608
  Serious: Yes (Death)
  Sender: FDA-Public Use
  Company Number: ALK_02207_2012

PATIENT
  Sex: Female

DRUGS (6)
  1. VERAPAMIL [Concomitant]
  2. LEXAPRO [Concomitant]
  3. MULTI-VITAMIN [Concomitant]
  4. VIVITROL [Suspect]
     Indication: ALCOHOLISM
     Dosage: 380 MG 1X/MONTH INTRAMUSCULAR
     Route: 030
     Dates: start: 20110908, end: 20111205
  5. WELLBUTRIN [Concomitant]
  6. AMLODIPINE [Concomitant]

REACTIONS (1)
  - DEATH [None]
